FAERS Safety Report 5083914-1 (Version None)
Quarter: 2006Q3

REPORT INFORMATION
  Report Type: 
  Country: None (occurrence: None)
  Receive Date: 20060727
  Receipt Date: 20060410
  Transmission Date: 20061208
  Serious: Yes (Other)
  Sender: FDA-Public Use
  Company Number: 2006050762

PATIENT
  Sex: Female

DRUGS (9)
  1. LYRICA [Suspect]
     Indication: CENTRAL PAIN SYNDROME
     Dosage: 75 MG (75 MG, 1 IN 1 D)
     Dates: start: 20060401
  2. LYRICA [Suspect]
     Indication: MUSCLE SPASTICITY
     Dosage: 75 MG (75 MG, 1 IN 1 D)
     Dates: start: 20060401
  3. ALL OTHER THERAPEUTIC PRODUCTS (ALL OTHER THERAPEUTIC PRODUCTS) [Concomitant]
  4. PRIMIDONE [Concomitant]
  5. OXYCODONE (OXYCODONE) [Concomitant]
  6. DIAZEPAM [Concomitant]
  7. ZOCOR [Concomitant]
  8. VALSARTAN [Concomitant]
  9. DETROL [Concomitant]

REACTIONS (8)
  - ASTHENIA [None]
  - CONDITION AGGRAVATED [None]
  - DRUG INEFFECTIVE [None]
  - DYSPNOEA [None]
  - EPISTAXIS [None]
  - FATIGUE [None]
  - FEELING ABNORMAL [None]
  - HYPOAESTHESIA [None]
